FAERS Safety Report 5143211-2 (Version None)
Quarter: 2006Q4

REPORT INFORMATION
  Report Type: 
  Country: None (occurrence: None)
  Receive Date: 20061030
  Receipt Date: 20061024
  Transmission Date: 20070319
  Serious: Yes (Death, Life-Threatening, Hospitalization)
  Sender: FDA-Public Use
  Company Number: 2006099946

PATIENT
  Age: 54 Year
  Sex: Male
  Weight: 122 kg

DRUGS (17)
  1. SUTENT [Suspect]
     Indication: RENAL CELL CARCINOMA STAGE UNSPECIFIED
     Dosage: 50 MG (50 MG, 1 IN 1 D), ORAL
     Route: 048
     Dates: start: 20051220, end: 20051223
  2. SUTENT [Suspect]
     Indication: RENAL CELL CARCINOMA STAGE UNSPECIFIED
     Dosage: 50 MG (50 MG, 1 IN 1 D), ORAL
     Route: 048
     Dates: start: 20060124, end: 20060814
  3. AMOXICILLIN [Concomitant]
  4. VALSARTAN [Concomitant]
  5. CARVEDILOL [Concomitant]
  6. ALLOPURINOL [Concomitant]
  7. ALPRAZOLAM [Concomitant]
  8. ESOMEPRAZOLE (ESOMEPRAZOLE) [Concomitant]
  9. DOMPERIDONE (DOMPERIDONE) [Concomitant]
  10. ENOXAPARIN SODIUM [Concomitant]
  11. BACLOFEN [Concomitant]
  12. ESCITALOPRAM OXALATE [Concomitant]
  13. ACETAMINOPHEN [Concomitant]
  14. YEAST (YEAST) [Concomitant]
  15. MICONAZOLE NITRATE [Concomitant]
  16. ZINC (ZINC) [Concomitant]
  17. ENOXAPARIN SODIUM [Concomitant]

REACTIONS (17)
  - BACILLUS INFECTION [None]
  - BLOOD PHOSPHORUS INCREASED [None]
  - CARDIAC FAILURE [None]
  - DIALYSIS [None]
  - ENCEPHALOPATHY [None]
  - HEPATIC FAILURE [None]
  - LUNG DISORDER [None]
  - METASTASES TO BONE [None]
  - METASTASES TO LUNG [None]
  - METASTASES TO LYMPH NODES [None]
  - METASTATIC RENAL CELL CARCINOMA [None]
  - MYOCARDITIS [None]
  - PLATELET COUNT DECREASED [None]
  - PLEURAL EFFUSION [None]
  - RENAL FAILURE [None]
  - SPINAL DECOMPRESSION [None]
  - STAPHYLOCOCCAL INFECTION [None]
